FAERS Safety Report 5018211-3 (Version None)
Quarter: 2006Q2

REPORT INFORMATION
  Report Type: 
  Country: None (occurrence: None)
  Receive Date: 20060530
  Receipt Date: 20060516
  Transmission Date: 20061013
  Serious: Yes (Hospitalization)
  Sender: FDA-Public Use
  Company Number: 2006064782

PATIENT
  Age: 53 Year
  Sex: Female

DRUGS (1)
  1. SUTENT [Suspect]
     Indication: GASTROINTESTINAL STROMAL TUMOUR
     Dosage: 50 MG (50 MG, QD-INTERVAL: EVERY DAY), ORAL
     Route: 048
     Dates: start: 20060420, end: 20060515

REACTIONS (1)
  - CONFUSIONAL STATE [None]
